FAERS Safety Report 4655047-7 (Version None)
Quarter: 2005Q2

REPORT INFORMATION
  Report Type: 
  Country: None (occurrence: None)
  Receive Date: 20050506
  Receipt Date: 20050426
  Transmission Date: 20051028
  Serious: Yes (Life-Threatening)
  Sender: FDA-Public Use
  Company Number: US-ABBOTT-05P-163-0298458-00

PATIENT
  Age: 4 Year
  Sex: Male
  Weight: 16.4 kg

DRUGS (11)
  1. ULTANE [Suspect]
     Indication: INDUCTION OF ANAESTHESIA
     Dosage: NOT REPORTED
  2. PANCURONIUM [Suspect]
     Indication: NEUROMUSCULAR BLOCKADE
     Dosage: NOT REPORTED
  3. ISOFLURANE [Suspect]
     Indication: MAINTENANCE OF ANAESTHESIA
     Dosage: NOT REPORTED
  4. OXYGEN [Concomitant]
     Indication: INDUCTION OF ANAESTHESIA
     Dosage: NOT REPORTED
  5. NITROUS OXIDE [Concomitant]
     Indication: INDUCTION OF ANAESTHESIA
     Dosage: NOT REPORTED
  6. FENTANYL [Concomitant]
     Indication: MAINTENANCE OF ANAESTHESIA
     Dosage: NOT REPORTED
  7. CARDIOPLEGIA [Concomitant]
     Indication: CARDIAC OPERATION
     Dosage: 25 ML/KG ONCE
  8. POTASSIUM CHLORIDE [Concomitant]
     Indication: CARDIAC OPERATION
     Dosage: 15 MEQ/L ONCE
  9. ATROPINE [Concomitant]
     Indication: NEUROMUSCULAR BLOCKADE REVERSAL
     Dosage: NOT REPORTED
  10. NEOSTIGMINE [Concomitant]
     Indication: NEUROMUSCULAR BLOCKADE REVERSAL
     Dosage: NOT REPORTED
  11. PENTOBARBITAL CAP [Concomitant]
     Indication: PREMEDICATION
     Dosage: NOT REPORTED
     Route: 048

REACTIONS (6)
  - BRADYCARDIA [None]
  - CARDIAC ARREST [None]
  - HYPERKALAEMIA [None]
  - RHABDOMYOLYSIS [None]
  - VENTRICULAR FIBRILLATION [None]
  - VENTRICULAR TACHYCARDIA [None]
